FAERS Safety Report 12663888 (Version 1)
Quarter: 2016Q3

REPORT INFORMATION
  Report Type: Spontaneous
  Country: US (occurrence: None)
  Receive Date: 20160817
  Receipt Date: 20160817
  Transmission Date: 20161109
  Serious: Yes (Hospitalization)
  Sender: FDA-Public Use
  Company Number: None

PATIENT
  Age: 65 Year
  Sex: Female
  Weight: 54 kg

DRUGS (1)
  1. TEMOZOLOMIDE. [Suspect]
     Active Substance: TEMOZOLOMIDE
     Dates: end: 20160226

REACTIONS (4)
  - Cerebrospinal fluid leakage [None]
  - Surgical procedure repeated [None]
  - Disease progression [None]
  - Craniotomy [None]

NARRATIVE: CASE EVENT DATE: 20160509
